FAERS Safety Report 7056133 (Version 3)
Quarter: 2013Q1

REPORT INFORMATION
  Report Type: Spontaneous
  Country: US (occurrence: US)
  Receive Date: 20090721
  Receipt Date: 20130211
  Transmission Date: 20140127
  Serious: Yes (Hospitalization, Other)
  Sender: FDA-Public Use
  Company Number: US-BAYER-200926868NA

PATIENT
  Age: 24 Year
  Sex: Female
  Weight: 106.36 kg

DRUGS (2)
  1. YAZ [Suspect]
     Indication: CONTRACEPTION
     Dosage: 1 TAB/DAY
     Route: 048
     Dates: start: 200706
  2. PHENTERMINE HYDROCHLORIDE [Concomitant]
     Indication: PRODUCT USED FOR UNKNOWN INDICATION
     Dosage: INTERMITTENT USE
     Route: 048

REACTIONS (4)
  - Cholelithiasis [None]
  - Pelvic venous thrombosis [Not Recovered/Not Resolved]
  - Deep vein thrombosis [None]
  - Antiphospholipid antibodies positive [Not Recovered/Not Resolved]
